FAERS Safety Report 9107390 (Version 2)
Quarter: 2013Q2

REPORT INFORMATION
  Report Type: Spontaneous
  Country: US (occurrence: US)
  Receive Date: 20130221
  Receipt Date: 20130625
  Transmission Date: 20140414
  Serious: Yes (Other)
  Sender: FDA-Public Use
  Company Number: US-PFIZER INC-2013061721

PATIENT
  Sex: Female
  Weight: 54.42 kg

DRUGS (12)
  1. AVINZA [Suspect]
     Indication: PAIN
     Dosage: 60 MG, 2X/DAY
     Dates: start: 201211
  2. AVINZA [Suspect]
     Dosage: 120 MG, 2X/DAY
  3. AVINZA [Suspect]
     Dosage: 180 MG IN MORNING AND 90 MG AT NIGHT (2X/DAY)
  4. AVINZA [Suspect]
     Dosage: 240 MG, 2X/DAY
  5. AVINZA [Suspect]
     Dosage: 180 MG IN MORNING AND 120 MG AT NIGHT (2X/DAY)
     Dates: start: 20130213, end: 20130216
  6. AVINZA [Suspect]
     Dosage: 240 MG, 2X/DAY
  7. AVINZA [Suspect]
     Dosage: 120 MG, 2X/DAY
  8. AVINZA [Suspect]
     Dosage: 60 MG, 2X/DAY
  9. REQUIP [Suspect]
     Indication: RESTLESS LEGS SYNDROME
     Dosage: UNK
  10. SKELAXIN [Concomitant]
     Indication: MUSCLE SPASMS
     Dosage: 800 MG, 4X/DAY
  11. PROTONIX [Concomitant]
     Dosage: 40 MG, UNK
  12. PAXIL [Concomitant]
     Dosage: 20 MG, 1X/DAY

REACTIONS (7)
  - Drug dependence [Unknown]
  - Withdrawal syndrome [Unknown]
  - Panic attack [Not Recovered/Not Resolved]
  - Anxiety [Not Recovered/Not Resolved]
  - Restless legs syndrome [Not Recovered/Not Resolved]
  - Dyskinesia [Unknown]
  - Poor quality drug administered [Unknown]
